FAERS Safety Report 7560047-3 (Version None)
Quarter: 2011Q2

REPORT INFORMATION
  Report Type: 
  Country: None (occurrence: None)
  Receive Date: 20110621
  Receipt Date: 20110614
  Transmission Date: 20111010
  Serious: Yes (Life-Threatening, Other)
  Sender: FDA-Public Use
  Company Number: PHHY2011US52503

PATIENT
  Sex: Female

DRUGS (2)
  1. VIVELLE-DOT [Suspect]
     Dosage: 0.0375 MG
     Route: 062
  2. VIVELLE-DOT [Suspect]
     Dosage: 0.05 MG, BIW
     Route: 062
     Dates: start: 20110301

REACTIONS (17)
  - FATIGUE [None]
  - FLUID RETENTION [None]
  - FEELING ABNORMAL [None]
  - ABDOMINAL DISTENSION [None]
  - VISION BLURRED [None]
  - DIZZINESS [None]
  - PANCREATIC DISORDER [None]
  - ASTHENIA [None]
  - WEIGHT INCREASED [None]
  - BREAST DISORDER [None]
  - HEADACHE [None]
  - HYPOGLYCAEMIA [None]
  - POST GASTRIC SURGERY SYNDROME [None]
  - DEPRESSION [None]
  - ACNE [None]
  - NAUSEA [None]
  - PAIN IN EXTREMITY [None]
